FAERS Safety Report 19793035 (Version 7)
Quarter: 2022Q1

REPORT INFORMATION
  Report Type: Spontaneous
  Country: US (occurrence: US)
  Receive Date: 20210906
  Receipt Date: 20220221
  Transmission Date: 20220423
  Serious: No
  Sender: FDA-Public Use
  Company Number: US-TAKEDA-2021TUS053528

PATIENT
  Age: 62 Year
  Sex: Female

DRUGS (7)
  1. NINLARO [Suspect]
     Active Substance: IXAZOMIB CITRATE
     Indication: Plasma cell myeloma
     Dosage: 4 MILLIGRAM
     Route: 048
     Dates: start: 20210723
  2. NINLARO [Suspect]
     Active Substance: IXAZOMIB CITRATE
     Indication: Renal neoplasm
  3. NINLARO [Suspect]
     Active Substance: IXAZOMIB CITRATE
     Indication: Renal cancer
  4. REVLIMID [Suspect]
     Active Substance: LENALIDOMIDE
     Indication: Renal cancer
     Dosage: 25 MILLIGRAM
     Route: 048
     Dates: start: 20210730
  5. AMLODIPINE [Concomitant]
     Active Substance: AMLODIPINE BESYLATE
     Dosage: UNK
     Route: 065
  6. LEVOTHYROXINE [Concomitant]
     Active Substance: LEVOTHYROXINE
     Dosage: UNK
     Route: 065
  7. BENAZEPRIL [Concomitant]
     Active Substance: BENAZEPRIL HYDROCHLORIDE
     Dosage: UNK
     Route: 065

REACTIONS (5)
  - Myalgia [Unknown]
  - Diarrhoea [Unknown]
  - Rash [Unknown]
  - Nausea [Unknown]
  - Constipation [Unknown]

NARRATIVE: CASE EVENT DATE: 20210801
